FAERS Safety Report 8638107 (Version 3)
Quarter: 2012Q4

REPORT INFORMATION
  Report Type: 
  Country: DE (occurrence: JP)
  Receive Date: 20120627
  Receipt Date: 20121101
  Transmission Date: 20130627
  Serious: Yes (Other)
  Sender: FDA-Public Use
  Company Number: JP-FRI-1000036631

PATIENT
  Age: 90 Year
  Sex: Female
  Weight: 64 kg

DRUGS (13)
  1. MEMANTINE [Suspect]
     Indication: DEMENTIA ALZHEIMER^S TYPE
     Dosage: 5 mg
     Route: 048
     Dates: start: 20120213, end: 20120224
  2. MEMANTINE [Suspect]
     Indication: ALTERED STATE OF CONSCIOUSNESS
     Dosage: 10 mg
     Route: 048
     Dates: start: 20120225, end: 20120314
  3. MEMANTINE [Suspect]
     Indication: DEMENTIA ALZHEIMER^S TYPE
     Dosage: 20 mg
     Route: 048
     Dates: start: 20120315, end: 20120520
  4. MEMANTINE [Suspect]
     Indication: ALTERED STATE OF CONSCIOUSNESS
  5. DONEPEZIL HYDROCHLORIDE OD [Concomitant]
     Dosage: 5 mg
     Route: 048
     Dates: start: 20080401
  6. AVAPRO [Concomitant]
     Dosage: 100 mg
     Route: 048
     Dates: start: 20081015
  7. LIVALO [Concomitant]
     Dosage: 2 mg
     Route: 048
     Dates: start: 20081015
  8. NICHIASPIRIN [Concomitant]
     Dosage: 100 mg
     Route: 048
     Dates: start: 20080401
  9. PIOGLITAZONE [Concomitant]
     Dosage: 15 mg
     Route: 048
     Dates: start: 20080401
  10. OVULANZE [Concomitant]
     Dosage: 20 mg
     Route: 048
     Dates: start: 20080401
  11. EDIROL [Concomitant]
     Dosage: 0.75 mcg
     Route: 048
     Dates: start: 20120321
  12. SALUMOSIN [Concomitant]
     Dosage: 15 mg
     Route: 048
     Dates: start: 20080401
  13. DAIMEDIN 3B [Concomitant]
     Dates: start: 20080401

REACTIONS (3)
  - Altered state of consciousness [Recovered/Resolved]
  - Musculoskeletal stiffness [Recovered/Resolved]
  - Dyspnoea [Recovered/Resolved]
